FAERS Safety Report 5899677-3 (Version None)
Quarter: 2008Q3

REPORT INFORMATION
  Report Type: 
  Country: None (occurrence: None)
  Receive Date: 20080926
  Receipt Date: 20080919
  Transmission Date: 20090109
  Serious: Yes (Hospitalization, Other)
  Sender: FDA-Public Use
  Company Number: CH-WYE-G02073708

PATIENT
  Age: 64 Year
  Sex: Male

DRUGS (9)
  1. TEMSIROLIMUS [Suspect]
     Indication: METASTATIC RENAL CELL CARCINOMA
     Dosage: 25 MG, FREQUENCY UNKNOWN
     Dates: start: 20080702, end: 20080101
  2. TEMSIROLIMUS [Suspect]
     Dosage: 25 MG, FREQUENCY UNKNOWN
     Dates: start: 20080101
  3. SOLU-MEDROL [Concomitant]
     Dosage: 125 MG EVERY 1 PRN
     Route: 042
  4. NOVOLOG MIX 70/30 [Concomitant]
  5. DURAGESIC-100 [Concomitant]
     Dosage: 25 UG, FREQUENCY UNKNOWN
  6. SIMVASTATIN [Concomitant]
     Dosage: 40 MG, FREQUENCY UNKNOWN
  7. LASIX [Concomitant]
     Dosage: 40 MG, FREQUENCY UNKNOWN
  8. SPIRICORT [Concomitant]
  9. NEXIUM [Concomitant]
     Dosage: 20 MG, FREQUENCY UNKNOWN

REACTIONS (5)
  - ATRIAL FIBRILLATION [None]
  - BLOOD GLUCOSE FLUCTUATION [None]
  - HYPOTENSION [None]
  - PNEUMONIA [None]
  - THROMBOCYTOPENIA [None]
